FAERS Safety Report 17591719 (Version 1)
Quarter: 2020Q1

REPORT INFORMATION
  Report Type: Spontaneous
  Country: TR (occurrence: TR)
  Receive Date: 20200327
  Receipt Date: 20200327
  Transmission Date: 20200409
  Serious: Yes (Hospitalization, Other)
  Sender: FDA-Public Use
  Company Number: NVSC2020TR084866

PATIENT
  Age: 16 Year
  Sex: Male

DRUGS (1)
  1. TRICLABENDAZOLE [Suspect]
     Active Substance: TRICLABENDAZOLE
     Indication: FASCIOLIASIS
     Dosage: 10 MG, QD
     Route: 065

REACTIONS (1)
  - Cholecystitis acute [Recovered/Resolved]
